FAERS Safety Report 5081043-4 (Version None)
Quarter: 2006Q3

REPORT INFORMATION
  Report Type: 
  Country: None (occurrence: None)
  Receive Date: 20060810
  Receipt Date: 20060726
  Transmission Date: 20061208
  Serious: Yes (Hospitalization)
  Sender: FDA-Public Use
  Company Number: US200607005452

PATIENT
  Age: 28 Year
  Sex: Female

DRUGS (1)
  1. INSULIN [Suspect]
     Indication: DIABETES MELLITUS INSULIN-DEPENDENT

REACTIONS (4)
  - DRUG EXPOSURE DURING PREGNANCY [None]
  - PNEUMONIA [None]
  - PREGNANCY [None]
  - PREMATURE LABOUR [None]
